FAERS Safety Report 25328850 (Version 2)
Quarter: 2025Q2

REPORT INFORMATION
  Report Type: Spontaneous
  Country: US (occurrence: US)
  Receive Date: 20250519
  Receipt Date: 20250520
  Transmission Date: 20250717
  Serious: No
  Sender: Haleon PLC
  Company Number: US-HALEON-2242715

PATIENT

DRUGS (1)
  1. ALLI [Suspect]
     Active Substance: ORLISTAT
     Indication: Weight decreased

REACTIONS (2)
  - Drug ineffective [Unknown]
  - Suspected counterfeit product [Unknown]
